FAERS Safety Report 9257032 (Version 1)
Quarter: 2013Q2

REPORT INFORMATION
  Report Type: Spontaneous
  Country: US (occurrence: None)
  Receive Date: 20130424
  Receipt Date: 20130424
  Transmission Date: 20140414
  Serious: No
  Sender: FDA-Public Use
  Company Number: None

PATIENT
  Age: 54 Year
  Sex: Male
  Weight: 131.54 kg

DRUGS (1)
  1. MONTELUKAST [Suspect]
     Indication: COUGH
     Route: 048
     Dates: start: 201208, end: 201302

REACTIONS (1)
  - Adverse event [None]
